FAERS Safety Report 23481463 (Version 1)
Quarter: 2024Q1

REPORT INFORMATION
  Report Type: Spontaneous
  Country: US (occurrence: None)
  Receive Date: 20240202
  Receipt Date: 20240202
  Transmission Date: 20240410
  Serious: Yes (Death)
  Sender: FDA-Public Use
  Company Number: None

PATIENT
  Age: 84 Year
  Sex: Female

DRUGS (1)
  1. NEUPOGEN [Suspect]
     Active Substance: FILGRASTIM
     Indication: Myelodysplastic syndrome
     Dosage: 300MCG EVERY 14 DAYS SUBCUTANEOUS?
     Route: 058
     Dates: start: 20220831

REACTIONS (1)
  - Death [None]

NARRATIVE: CASE EVENT DATE: 20240130
